FAERS Safety Report 21674262 (Version 1)
Quarter: 2022Q4

REPORT INFORMATION
  Report Type: Spontaneous
  Country: US (occurrence: None)
  Receive Date: 20221201
  Receipt Date: 20221201
  Transmission Date: 20230112
  Serious: Yes (Other)
  Sender: FDA-Public Use
  Company Number: None

PATIENT
  Age: 29 Year
  Sex: Female
  Weight: 121.5 kg

DRUGS (2)
  1. ALVESCO [Suspect]
     Active Substance: CICLESONIDE
     Indication: Cough
     Dosage: OTHER STRENGTH : MCG/ACUATION;?FREQUENCY : TWICE A DAY;?
     Route: 055
     Dates: start: 20221129, end: 20221201
  2. ALVESCO [Suspect]
     Active Substance: CICLESONIDE
     Indication: Dyspnoea

REACTIONS (2)
  - Headache [None]
  - Suicidal behaviour [None]

NARRATIVE: CASE EVENT DATE: 20221201
